FAERS Safety Report 5431369-7 (Version None)
Quarter: 2007Q3

REPORT INFORMATION
  Report Type: 
  Country: None (occurrence: None)
  Receive Date: 20070830
  Receipt Date: 20070521
  Transmission Date: 20080115
  Serious: No
  Sender: FDA-Public Use
  Company Number: A0650815A

PATIENT
  Age: 13 Year
  Sex: Female
  Weight: 63.6 kg

DRUGS (2)
  1. WELLBUTRIN XL [Suspect]
     Indication: DEPRESSION
     Dosage: 150MG PER DAY
     Route: 048
     Dates: start: 20061220
  2. NO CONCURRENT MEDICATIONS [Concomitant]

REACTIONS (1)
  - HAIR COLOUR CHANGES [None]
